FAERS Safety Report 5250474-1 (Version None)
Quarter: 2007Q1

REPORT INFORMATION
  Report Type: 
  Country: None (occurrence: None)
  Receive Date: 20070228
  Receipt Date: 20070220
  Transmission Date: 20070707
  Serious: Yes (Other)
  Sender: FDA-Public Use
  Company Number: US-GLAXOSMITHKLINE-A0602647A

PATIENT
  Sex: Male

DRUGS (4)
  1. LAMICTAL [Suspect]
     Indication: EPILEPSY
     Route: 048
     Dates: start: 20051201
  2. RISPERDAL [Concomitant]
  3. REMERON [Concomitant]
  4. CLARITIN [Concomitant]

REACTIONS (3)
  - CONVULSION [None]
  - SOMNOLENCE [None]
  - URINE OUTPUT INCREASED [None]
